FAERS Safety Report 4893578-5 (Version None)
Quarter: 2006Q1

REPORT INFORMATION
  Report Type: 
  Country: None (occurrence: None)
  Receive Date: 20060124
  Receipt Date: 20060113
  Transmission Date: 20060701
  Serious: Yes (Hospitalization, Other)
  Sender: FDA-Public Use
  Company Number: 2005168993

PATIENT
  Age: 66 Year
  Sex: Male
  Weight: 81.5 kg

DRUGS (10)
  1. INSPRA [Suspect]
     Indication: CARDIAC FAILURE
     Dosage: 25 MG (25 MG, DAILY  INTERVAL: EVERY DAY), ORAL
     Route: 048
     Dates: start: 20051001, end: 20051206
  2. ALLOPURINOL [Concomitant]
  3. SIMVASTATIN [Concomitant]
  4. DOCUSATE (DOCUSATE) [Concomitant]
  5. BUMETANIDE [Concomitant]
  6. LANSOPRAZOLE [Concomitant]
  7. ACETAMINOPHEN [Concomitant]
  8. PEPTAC (CALCIUM CARBONATE, SODIUM ALGINATE, SODIUM BICARBONATE) [Concomitant]
  9. BISOPROLOL (BISOPROLOL) [Concomitant]
  10. ASPIRIN [Concomitant]

REACTIONS (4)
  - PAIN IN EXTREMITY [None]
  - PURPURA [None]
  - SCAB [None]
  - SKIN LESION [None]
